FAERS Safety Report 8832983 (Version 2)
Quarter: 2013Q2

REPORT INFORMATION
  Report Type: Spontaneous
  Country: KR (occurrence: KR)
  Receive Date: 20121010
  Receipt Date: 20130422
  Transmission Date: 20140414
  Serious: Yes (Hospitalization)
  Sender: FDA-Public Use
  Company Number: PHHY2012KR086183

PATIENT
  Age: 22 Year
  Sex: Male

DRUGS (4)
  1. CEFOTAXIME [Suspect]
     Indication: CHOLECYSTITIS ACUTE
  2. METRONIDAZOLE [Suspect]
     Indication: CHOLECYSTITIS ACUTE
  3. GANCICLOVIR [Suspect]
     Indication: CYTOMEGALOVIRUS INFECTION
  4. OSELTAMIVIR [Suspect]
     Indication: H1N1 INFLUENZA

REACTIONS (6)
  - Drug reaction with eosinophilia and systemic symptoms [Recovering/Resolving]
  - Pyrexia [Recovering/Resolving]
  - Rash [Recovering/Resolving]
  - Pruritus [Recovering/Resolving]
  - Drug eruption [Recovering/Resolving]
  - Azotaemia [Recovering/Resolving]
